FAERS Safety Report 18136520 (Version 2)
Quarter: 2020Q4

REPORT INFORMATION
  Report Type: Report from Study
  Country: US (occurrence: US)
  Receive Date: 20200811
  Receipt Date: 20201128
  Transmission Date: 20210113
  Serious: No
  Sender: FDA-Public Use
  Company Number: NVSC2020US214795

PATIENT
  Sex: Male
  Weight: 49.9 kg

DRUGS (1)
  1. OMNITROPE [Suspect]
     Active Substance: SOMATROPIN
     Indication: SHORT STATURE
     Dosage: UNK
     Route: 065

REACTIONS (3)
  - Skin striae [Unknown]
  - Erythema [Unknown]
  - Decreased appetite [Unknown]
